FAERS Safety Report 7773145-6 (Version None)
Quarter: 2011Q3

REPORT INFORMATION
  Report Type: 
  Country: None (occurrence: None)
  Receive Date: 20110922
  Receipt Date: 20110505
  Transmission Date: 20111222
  Serious: No
  Sender: FDA-Public Use
  Company Number: US-ASTRAZENECA-2011SE04957

PATIENT
  Age: 540 Month
  Sex: Male
  Weight: 163.3 kg

DRUGS (9)
  1. LATUDA [Suspect]
     Route: 048
     Dates: start: 20110324
  2. ADDERALL 5 [Concomitant]
  3. ATIVAN [Concomitant]
  4. UNSPECIFIED PAIN MEDICATION [Concomitant]
  5. LATUDA [Suspect]
     Route: 048
     Dates: start: 20110324
  6. SEROQUEL [Suspect]
     Route: 048
     Dates: start: 20040101
  7. SEROQUEL [Suspect]
     Route: 048
     Dates: end: 20110323
  8. LATUDA [Suspect]
     Indication: PARANOIA
     Route: 048
     Dates: start: 20110314, end: 20110323
  9. LATUDA [Suspect]
     Indication: ANXIETY
     Route: 048
     Dates: start: 20110314, end: 20110323

REACTIONS (12)
  - SINUS DISORDER [None]
  - NAUSEA [None]
  - DYSTONIA [None]
  - NIGHT SWEATS [None]
  - OEDEMA PERIPHERAL [None]
  - MUSCLE SPASMS [None]
  - THROAT TIGHTNESS [None]
  - VOMITING [None]
  - WEIGHT INCREASED [None]
  - DYSPNOEA [None]
  - BLOOD TESTOSTERONE DECREASED [None]
  - VISION BLURRED [None]
